FAERS Safety Report 10189944 (Version 1)
Quarter: 2014Q2

REPORT INFORMATION
  Report Type: Spontaneous
  Country: DK (occurrence: DK)
  Receive Date: 20140522
  Receipt Date: 20140522
  Transmission Date: 20141212
  Serious: Yes (Hospitalization, Other)
  Sender: FDA-Public Use
  Company Number: PHHY2014DK060281

PATIENT
  Age: 71 Year
  Sex: Female

DRUGS (3)
  1. METHOTREXATE SANDOZ [Suspect]
     Indication: PSORIASIS
     Dates: end: 20140330
  2. INHALATION THERAPY [Concomitant]
     Indication: ASTHMA
  3. ANTIBIOTICS [Concomitant]
     Indication: FALL

REACTIONS (2)
  - Fall [Unknown]
  - Alanine aminotransferase increased [Unknown]
